FAERS Safety Report 26131779 (Version 1)
Quarter: 2025Q4

REPORT INFORMATION
  Report Type: Report from Study
  Country: US (occurrence: US)
  Receive Date: 20251208
  Receipt Date: 20251208
  Transmission Date: 20260118
  Serious: Yes (Other)
  Sender: JOHNSON AND JOHNSON
  Company Number: US-JNJFOC-20251169300

PATIENT

DRUGS (3)
  1. TOPIRAMATE [Suspect]
     Active Substance: TOPIRAMATE
     Indication: Alcohol use disorder
     Dosage: TOPIRAMATE AND MATCHING PLACEBO (I.E., 0?MG TOPIRAMATE) WERE TITRATED FOR THE FIRST 5?WEEKS OF THE 18-WEEK TREATMENT PERIOD
     Route: 048
  2. TOPIRAMATE [Suspect]
     Active Substance: TOPIRAMATE
     Indication: Tobacco use disorder
     Route: 048
  3. TOPIRAMATE [Suspect]
     Active Substance: TOPIRAMATE
     Route: 048

REACTIONS (9)
  - Haemorrhage intracranial [Unknown]
  - Depression [Unknown]
  - Dysgeusia [Unknown]
  - Pruritus [Unknown]
  - Nausea [Unknown]
  - Paraesthesia [Unknown]
  - Irritability [Unknown]
  - Disturbance in attention [Unknown]
  - Off label use [Unknown]
